FAERS Safety Report 7415082-2 (Version None)
Quarter: 2011Q2

REPORT INFORMATION
  Report Type: 
  Country: None (occurrence: None)
  Receive Date: 20110414
  Receipt Date: 20110405
  Transmission Date: 20111010
  Serious: Yes (Disabling)
  Sender: FDA-Public Use
  Company Number: FR-ROCHE-770206

PATIENT
  Sex: Female

DRUGS (6)
  1. TAXOTERE [Concomitant]
     Dates: start: 20100414, end: 20100727
  2. ZOMETA [Suspect]
     Route: 065
     Dates: start: 20100818, end: 20110216
  3. AVASTIN [Suspect]
     Route: 065
     Dates: start: 20100818, end: 20110216
  4. ZOMETA [Suspect]
     Indication: BREAST CANCER
     Route: 065
     Dates: start: 20100414, end: 20100727
  5. AVASTIN [Suspect]
     Indication: BREAST CANCER
     Route: 065
     Dates: start: 20100414, end: 20100727
  6. FASLODEX [Concomitant]
     Dosage: FREQUENCT: EVERY MONTHLY
     Route: 030
     Dates: start: 20100818, end: 20110216

REACTIONS (1)
  - OSTEONECROSIS [None]
